FAERS Safety Report 9877955 (Version 2)
Quarter: 2014Q1

REPORT INFORMATION
  Report Type: Spontaneous
  Country: US (occurrence: US)
  Receive Date: 20140206
  Receipt Date: 20140219
  Transmission Date: 20141002
  Serious: No
  Sender: FDA-Public Use
  Company Number: US-BAXTER-2014BAX005256

PATIENT
  Age: 64 Year
  Sex: Male

DRUGS (1)
  1. DIANEAL LOW CALCIUM [Suspect]
     Indication: PERITONEAL DIALYSIS
     Route: 033
     Dates: start: 20140107

REACTIONS (5)
  - Chest pain [Unknown]
  - Accidental exposure to product [Unknown]
  - Flatulence [Recovered/Resolved]
  - Abdominal pain [Recovered/Resolved]
  - Musculoskeletal pain [Unknown]
